FAERS Safety Report 5767479-4 (Version None)
Quarter: 2008Q2

REPORT INFORMATION
  Report Type: 
  Country: None (occurrence: None)
  Receive Date: 20080611
  Receipt Date: 20080611
  Transmission Date: 20081010
  Serious: Yes (Other)
  Sender: FDA-Public Use
  Company Number: None

PATIENT
  Age: 83 Year
  Sex: Male

DRUGS (1)
  1. EXELON [Suspect]
     Dosage: APPLY ONE PATCH DAILY
     Dates: start: 20080410, end: 20080530

REACTIONS (2)
  - BONE PAIN [None]
  - NECK PAIN [None]
